FAERS Safety Report 23776932 (Version 4)
Quarter: 2024Q2

REPORT INFORMATION
  Report Type: Spontaneous
  Country: US (occurrence: US)
  Receive Date: 20240424
  Receipt Date: 20240530
  Transmission Date: 20240716
  Serious: No
  Sender: FDA-Public Use
  Company Number: US-BRISTOL-MYERS SQUIBB COMPANY-2024-063077

PATIENT
  Age: 84 Year
  Sex: Female

DRUGS (2)
  1. REVLIMID [Suspect]
     Active Substance: LENALIDOMIDE
     Indication: Follicular lymphoma
     Route: 048
     Dates: start: 202403
  2. REVLIMID [Suspect]
     Active Substance: LENALIDOMIDE

REACTIONS (7)
  - Fatigue [Unknown]
  - Depression [Unknown]
  - Psoriasis [Unknown]
  - Nausea [Unknown]
  - Aphthous ulcer [Unknown]
  - Pruritus [Unknown]
  - Arthralgia [Unknown]
